FAERS Safety Report 4551310-9 (Version None)
Quarter: 2005Q1

REPORT INFORMATION
  Report Type: 
  Country: None (occurrence: None)
  Receive Date: 20050110
  Receipt Date: 20041228
  Transmission Date: 20050727
  Serious: Yes (Life-Threatening, Hospitalization)
  Sender: FDA-Public Use
  Company Number: 2004-BP-14438RO

PATIENT
  Age: 35 Year
  Sex: Female

DRUGS (1)
  1. METHOTREXATE [Suspect]
     Indication: RHEUMATOID ARTHRITIS
     Dosage: 6 MG/WK UP TO 15 MG/WK (NR 1 IN 1 WK) PO
     Route: 048
     Dates: start: 20010101, end: 20021007

REACTIONS (14)
  - BLOOD BETA-D-GLUCAN INCREASED [None]
  - BLOOD IMMUNOGLOBULIN G DECREASED [None]
  - BLOOD LACTATE DEHYDROGENASE INCREASED [None]
  - C-REACTIVE PROTEIN INCREASED [None]
  - CD4/CD8 RATIO INCREASED [None]
  - COUGH [None]
  - CRACKLES LUNG [None]
  - DYSPNOEA [None]
  - HYPOXIA [None]
  - LABORATORY TEST ABNORMAL [None]
  - LUNG INJURY [None]
  - LYMPHOCYTOSIS [None]
  - PYREXIA [None]
  - RESPIRATORY DISTRESS [None]
